FAERS Safety Report 7642904-2 (Version None)
Quarter: 2011Q3

REPORT INFORMATION
  Report Type: 
  Country: None (occurrence: None)
  Receive Date: 20110728
  Receipt Date: 20110725
  Transmission Date: 20111222
  Serious: Yes (Death, Other)
  Sender: FDA-Public Use
  Company Number: PHEH2010US00506

PATIENT
  Sex: Female
  Weight: 74.336 kg

DRUGS (2)
  1. AREDIA [Suspect]
     Dosage: UNK
  2. ZOMETA [Suspect]
     Dosage: UNK

REACTIONS (19)
  - DEATH [None]
  - OSTEONECROSIS OF JAW [None]
  - LUNG NEOPLASM [None]
  - CHRONIC OBSTRUCTIVE PULMONARY DISEASE [None]
  - PNEUMONIA [None]
  - PERIPHERAL VASCULAR DISORDER [None]
  - CHEST PAIN [None]
  - ANHEDONIA [None]
  - BREAST CANCER [None]
  - EMPHYSEMA [None]
  - BONE NEOPLASM MALIGNANT [None]
  - HYPERTENSION [None]
  - INJURY [None]
  - BLOOD CHOLESTEROL INCREASED [None]
  - DISABILITY [None]
  - PAIN [None]
  - DYSPNOEA [None]
  - GASTROOESOPHAGEAL REFLUX DISEASE [None]
  - ANXIETY [None]
